FAERS Safety Report 4780395-X (Version None)
Quarter: 2005Q3

REPORT INFORMATION
  Report Type: 
  Country: None (occurrence: None)
  Receive Date: 20050926
  Receipt Date: 20050913
  Transmission Date: 20060218
  Serious: Yes (Disabling)
  Sender: FDA-Public Use
  Company Number: 2005129013

PATIENT
  Age: 68 Year
  Sex: Female

DRUGS (1)
  1. SERTRALINE HCL [Suspect]
     Indication: DEPRESSION
     Dosage: ORAL
     Route: 048

REACTIONS (4)
  - APHASIA [None]
  - CEREBRAL ISCHAEMIA [None]
  - HEMIPLEGIA [None]
  - INTENTIONAL MISUSE [None]
